FAERS Safety Report 6531484-0 (Version None)
Quarter: 2010Q1

REPORT INFORMATION
  Report Type: 
  Country: None (occurrence: None)
  Receive Date: 20100108
  Receipt Date: 20091228
  Transmission Date: 20100710
  Serious: No
  Sender: FDA-Public Use
  Company Number: US-BAYER-200917900BCC

PATIENT
  Sex: Female

DRUGS (1)
  1. ALEVE [Suspect]
     Indication: SELF-INJURIOUS IDEATION
     Dosage: TOTAL DAILY DOSE: 3300 MG  UNIT DOSE: 220 MG
     Route: 048
     Dates: start: 20091228

REACTIONS (3)
  - EYE MOVEMENT DISORDER [None]
  - MALAISE [None]
  - PALLOR [None]
